FAERS Safety Report 12207002 (Version 1)
Quarter: 2016Q1

REPORT INFORMATION
  Report Type: Spontaneous
  Country: AU (occurrence: AU)
  Receive Date: 20160324
  Receipt Date: 20160324
  Transmission Date: 20160526
  Serious: Yes (Other)
  Sender: FDA-Public Use
  Company Number: AU-AMGEN-AUSSP2016036354

PATIENT
  Age: 91 Year
  Sex: Female

DRUGS (1)
  1. PROLIA [Suspect]
     Active Substance: DENOSUMAB
     Indication: RIB FRACTURE
     Dosage: UNK
     Route: 065
     Dates: start: 201601

REACTIONS (3)
  - Off label use [Unknown]
  - Hypocalcaemia [Unknown]
  - Femoral neck fracture [Unknown]
